FAERS Safety Report 12755467 (Version 1)
Quarter: 2016Q3

REPORT INFORMATION
  Report Type: Spontaneous
  Country: US (occurrence: US)
  Receive Date: 20160916
  Receipt Date: 20160916
  Transmission Date: 20161109
  Serious: Yes (Other)
  Sender: FDA-Public Use
  Company Number: US-SA-2016SA167086

PATIENT
  Age: 66 Year
  Sex: Male

DRUGS (3)
  1. LANTUS [Concomitant]
     Active Substance: INSULIN GLARGINE
     Dosage: DOSE:100 UNIT(S)
  2. SOLOSTAR [Concomitant]
     Active Substance: DEVICE
     Indication: TYPE 2 DIABETES MELLITUS
     Dates: start: 201605
  3. TOUJEO [Suspect]
     Active Substance: INSULIN GLARGINE
     Indication: TYPE 2 DIABETES MELLITUS
     Dosage: DOSE:80 UNIT(S)
     Route: 065
     Dates: start: 201605

REACTIONS (2)
  - Carpal tunnel syndrome [Unknown]
  - Swelling [Unknown]

NARRATIVE: CASE EVENT DATE: 201608
